FAERS Safety Report 6259696-4 (Version None)
Quarter: 2009Q3

REPORT INFORMATION
  Report Type: 
  Country: None (occurrence: None)
  Receive Date: 20090707
  Receipt Date: 20090707
  Transmission Date: 20100115
  Serious: Yes (Hospitalization, Disabling, Other)
  Sender: FDA-Public Use
  Company Number: None

PATIENT
  Age: 19 Year
  Sex: Female
  Weight: 54.4316 kg

DRUGS (2)
  1. PROVENTIL-HFA [Suspect]
     Indication: ASTHMA
     Dosage: 2 PUFFS 1 EVERY 4-8 HRS INTRATRACHEAL ENTIRE LIFE
     Route: 039
  2. PROVENTIL-HFA [Suspect]
     Indication: BRONCHITIS CHRONIC
     Dosage: 2 PUFFS 1 EVERY 4-8 HRS INTRATRACHEAL ENTIRE LIFE
     Route: 039

REACTIONS (4)
  - DYSPNOEA [None]
  - ECONOMIC PROBLEM [None]
  - PRODUCT SUBSTITUTION ISSUE [None]
  - TREMOR [None]
